FAERS Safety Report 9874280 (Version 2)
Quarter: 2014Q1

REPORT INFORMATION
  Report Type: Other
  Country: US (occurrence: US)
  Receive Date: 20140206
  Receipt Date: 20140206
  Transmission Date: 20141002
  Serious: No
  Sender: FDA-Public Use
  Company Number: US-ACORDA-ACO_34434_2013

PATIENT
  Sex: 0

DRUGS (10)
  1. AMPYRA [Suspect]
     Indication: GAIT DISTURBANCE
     Dosage: 10 MG, BID
     Dates: start: 20101105, end: 201011
  2. AMPYRA [Suspect]
     Dosage: 10 MG, QD
     Dates: start: 201011, end: 201011
  3. AMPYRA [Suspect]
     Dosage: 10 MG, BID
     Dates: start: 201011, end: 20101119
  4. AMPYRA [Suspect]
     Dosage: 10 MG, QD
     Dates: start: 20101119
  5. GLYBURIDE [Concomitant]
     Indication: DIABETES MELLITUS
     Dosage: 5 MG, 2 TABS BID
     Route: 048
     Dates: start: 20081013
  6. NEURONTIN [Concomitant]
     Indication: PRODUCT USED FOR UNKNOWN INDICATION
     Dosage: 600 MG, BID AND @HS
     Route: 048
     Dates: start: 20040818
  7. GLUCOPHAGE [Concomitant]
     Indication: DIABETES MELLITUS
     Dosage: 500 MG, BID
     Route: 048
     Dates: start: 20081012, end: 20120604
  8. ACTONEL [Concomitant]
     Indication: PRODUCT USED FOR UNKNOWN INDICATION
     Dosage: 35 MG, ONCE WEEKLY
     Route: 048
     Dates: start: 20060928, end: 20120430
  9. ACTOS [Concomitant]
     Indication: DIABETES MELLITUS
     Dosage: 15 MG, BID
     Route: 048
     Dates: start: 20050301, end: 20120202
  10. VYTORIN [Concomitant]
     Indication: PRODUCT USED FOR UNKNOWN INDICATION
     Dosage: 10/80, BID
     Route: 048
     Dates: start: 20070404, end: 20101209

REACTIONS (2)
  - Pain in extremity [Recovered/Resolved]
  - Inappropriate schedule of drug administration [Unknown]
